FAERS Safety Report 24252194 (Version 1)
Quarter: 2024Q3

REPORT INFORMATION
  Report Type: Spontaneous
  Country: US (occurrence: US)
  Receive Date: 20240827
  Receipt Date: 20240827
  Transmission Date: 20241017
  Serious: No
  Sender: RECKITT BENCKISER
  Company Number: US-PROD-AS2-212756134-RB-103672-2023

PATIENT
  Sex: Female

DRUGS (1)
  1. MUCINEX MAXIMUM STRENGTH [Suspect]
     Active Substance: GUAIFENESIN
     Indication: Illness
     Dosage: UNK
     Route: 048
     Dates: start: 20230723, end: 20230728

REACTIONS (2)
  - Adverse drug reaction [Not Recovered/Not Resolved]
  - Pruritus [Not Recovered/Not Resolved]
